FAERS Safety Report 19653551 (Version 1)
Quarter: 2021Q3

REPORT INFORMATION
  Report Type: Spontaneous
  Country: US (occurrence: US)
  Receive Date: 20210803
  Receipt Date: 20210803
  Transmission Date: 20211014
  Serious: No
  Sender: FDA-Public Use
  Company Number: US-INSUD PHARMA-2107US00835

PATIENT

DRUGS (1)
  1. CLOBETASOL CREAM [Suspect]
     Active Substance: CLOBETASOL
     Indication: DERMATITIS CONTACT
     Dosage: 3 TIMES DAILY
     Route: 061
     Dates: start: 20210719

REACTIONS (4)
  - Drug ineffective [Not Recovered/Not Resolved]
  - Product packaging issue [Unknown]
  - Product use issue [Unknown]
  - Product physical consistency issue [Unknown]

NARRATIVE: CASE EVENT DATE: 202107
